FAERS Safety Report 4596530-2 (Version None)
Quarter: 2005Q1

REPORT INFORMATION
  Report Type: 
  Country: None (occurrence: None)
  Receive Date: 20050228
  Receipt Date: 20031029
  Transmission Date: 20050727
  Serious: No
  Sender: FDA-Public Use
  Company Number: 6544

PATIENT
  Sex: Female

DRUGS (1)
  1. METHOTREXATE [Suspect]
     Indication: RHEUMATOID ARTHRITIS
     Dosage: 1.6 G TOTAL PO
     Route: 048
     Dates: start: 19970101

REACTIONS (1)
  - BILIARY CIRRHOSIS PRIMARY [None]
